FAERS Safety Report 7461579-9 (Version None)
Quarter: 2011Q2

REPORT INFORMATION
  Report Type: 
  Country: None (occurrence: None)
  Receive Date: 20110428
  Receipt Date: 20110414
  Transmission Date: 20111010
  Serious: Yes (Other)
  Sender: FDA-Public Use
  Company Number: 030665

PATIENT
  Sex: Male

DRUGS (6)
  1. AMLODIPINE [Concomitant]
  2. LEVOTHYROXINE SODIUM [Concomitant]
  3. CLONAZEPAM [Concomitant]
  4. CIMZIA [Suspect]
     Indication: CROHN'S DISEASE
     Dosage: (400 MG 1X/4 WEEKS SUBCUTANEOUS)
     Route: 058
     Dates: start: 20101117
  5. PENTASA [Concomitant]
  6. OMEPRAZOLE [Concomitant]

REACTIONS (4)
  - DYSURIA [None]
  - DIARRHOEA [None]
  - NEPHROLITHIASIS [None]
  - RENAL FAILURE [None]
